FAERS Safety Report 4522312-3 (Version None)
Quarter: 2004Q4

REPORT INFORMATION
  Report Type: 
  Country: None (occurrence: None)
  Receive Date: 20041207
  Receipt Date: 20041124
  Transmission Date: 20050328
  Serious: Yes (Other)
  Sender: FDA-Public Use
  Company Number: 210729

PATIENT
  Sex: Female

DRUGS (5)
  1. MABTHERA (RITUXIMAB) CONC FOR SOLUTION FOR INFUSION [Suspect]
     Indication: LYMPHOMA
     Dates: start: 20040901
  2. CYCLOPHOSPHAMIDE [Suspect]
     Indication: LYMPHOMA
     Dates: start: 20040901
  3. DOXORUBICIN (DOXORUBICIN, DOXORUBICIN HYDROCHLORIDE) [Suspect]
     Indication: LYMPHOMA
     Dates: start: 20040901
  4. VINCRISTINE [Suspect]
     Indication: LYMPHOMA
     Dates: start: 20040901
  5. PREDNISONE [Suspect]
     Indication: LYMPHOMA
     Dates: start: 20040901

REACTIONS (2)
  - BLINDNESS [None]
  - OPTIC NERVE DISORDER [None]
